FAERS Safety Report 23182806 (Version 1)
Quarter: 2023Q4

REPORT INFORMATION
  Report Type: Report from Study
  Country: DE (occurrence: DE)
  Receive Date: 20231114
  Receipt Date: 20231114
  Transmission Date: 20240110
  Serious: Yes (Death, Hospitalization, Other)
  Sender: FDA-Public Use
  Company Number: DE-SAMSUNG BIOEPIS-SB-2023-26807

PATIENT
  Age: 70 Year
  Sex: Female

DRUGS (2)
  1. METHOTREXATE SODIUM [Suspect]
     Active Substance: METHOTREXATE SODIUM
     Indication: Product used for unknown indication
     Route: 065
  2. ETANERCEPT [Concomitant]
     Active Substance: ETANERCEPT
     Indication: Rheumatoid arthritis
     Route: 065
     Dates: start: 201709, end: 201903

REACTIONS (5)
  - Non-small cell lung cancer metastatic [Fatal]
  - Pneumonia [Unknown]
  - Adrenal adenoma [Unknown]
  - Renal artery stenosis [Unknown]
  - Non-small cell lung cancer stage II [Not Recovered/Not Resolved]

NARRATIVE: CASE EVENT DATE: 20220701
